FAERS Safety Report 7405283-1 (Version None)
Quarter: 2011Q2

REPORT INFORMATION
  Report Type: 
  Country: None (occurrence: None)
  Receive Date: 20110404
  Receipt Date: 20110324
  Transmission Date: 20111010
  Serious: Yes (Hospitalization, Other)
  Sender: FDA-Public Use
  Company Number: 2010JP006695

PATIENT
  Age: 51 Year
  Sex: Female
  Weight: 40 kg

DRUGS (15)
  1. DIOVAN [Suspect]
     Indication: HYPERTENSION
     Dosage: 40 MG, UID/QD, ORAL
     Route: 048
     Dates: start: 20100615
  2. PREDNISOLONE TAB [Suspect]
     Indication: STILL'S DISEASE ADULT ONSET
     Dosage: SEE IMAGE
     Route: 048
     Dates: start: 20100113
  3. PREDNISOLONE TAB [Suspect]
     Indication: STILL'S DISEASE ADULT ONSET
     Dosage: SEE IMAGE
     Route: 048
     Dates: start: 20100127
  4. PREDNISOLONE TAB [Suspect]
     Indication: STILL'S DISEASE ADULT ONSET
     Dosage: SEE IMAGE
     Route: 048
     Dates: start: 20100615
  5. METHOTREXATE [Suspect]
     Indication: STILL'S DISEASE ADULT ONSET
     Dosage: 12.5 MG, WEEKLY, ORAL ; 2.5 MG, BID, ORAL
     Route: 048
  6. FOLIAMIN (FOLIC ACID) TABLET [Suspect]
     Dosage: 5 MG, WEEKLY, ORAL
     Route: 048
     Dates: start: 20100615
  7. CELECOXIB [Suspect]
     Indication: STILL'S DISEASE ADULT ONSET
     Dosage: 200 MG, BID, ORAL
     Route: 048
     Dates: start: 20100130
  8. ACTONEL [Suspect]
     Dosage: 17.5 MG, WEEKLY, ORAL
     Route: 048
     Dates: start: 20100130
  9. PREDONINE (PREDNISOLONE) TABLET [Suspect]
     Indication: STILL'S DISEASE ADULT ONSET
     Dosage: 10 MG, /D, ORAL
     Route: 048
     Dates: start: 20100615
  10. PROGRAF [Suspect]
     Indication: STILL'S DISEASE ADULT ONSET
     Dosage: 3 MG, UID/QD, ORAL ; 2 MG, UID/QD, ORAL ; 3 MG, UID/QD, ORAL ; 3 MG, UID/QD, ORAL
     Route: 048
     Dates: start: 20100724, end: 20100926
  11. PROGRAF [Suspect]
     Indication: STILL'S DISEASE ADULT ONSET
     Dosage: 3 MG, UID/QD, ORAL ; 2 MG, UID/QD, ORAL ; 3 MG, UID/QD, ORAL ; 3 MG, UID/QD, ORAL
     Route: 048
     Dates: start: 20100914, end: 20101029
  12. PROGRAF [Suspect]
     Indication: STILL'S DISEASE ADULT ONSET
     Dosage: 3 MG, UID/QD, ORAL ; 2 MG, UID/QD, ORAL ; 3 MG, UID/QD, ORAL ; 3 MG, UID/QD, ORAL
     Route: 048
     Dates: start: 20100127, end: 20100709
  13. PROGRAF [Suspect]
     Indication: STILL'S DISEASE ADULT ONSET
     Dosage: 3 MG, UID/QD, ORAL ; 2 MG, UID/QD, ORAL ; 3 MG, UID/QD, ORAL ; 3 MG, UID/QD, ORAL
     Route: 048
     Dates: start: 20100113, end: 20100126
  14. TAKEPRON (LANSOPRAZOLE) ORODISPERSIBLE CR TABLET [Suspect]
     Dosage: 15 MG, UID/QD, ORAL
     Route: 048
     Dates: start: 20100130
  15. ROHYPNOL (FLUNITRAZEPAM) TABLET [Suspect]
     Indication: INSOMNIA
     Dosage: 2 MG, PRN, ORAL
     Route: 048
     Dates: start: 20100130

REACTIONS (2)
  - OFF LABEL USE [None]
  - COLITIS ISCHAEMIC [None]
